FAERS Safety Report 15646374 (Version 3)
Quarter: 2019Q1

REPORT INFORMATION
  Report Type: Spontaneous
  Country: PT (occurrence: PT)
  Receive Date: 20181122
  Receipt Date: 20190206
  Transmission Date: 20190417
  Serious: Yes (Hospitalization, Other)
  Sender: FDA-Public Use
  Company Number: PT-AUROBINDO-AUR-APL-2018-056140

PATIENT
  Age: 88 Year
  Sex: Male

DRUGS (1)
  1. AMIODARONE [Suspect]
     Active Substance: AMIODARONE
     Indication: ATRIAL FIBRILLATION
     Dosage: UNK
     Route: 065

REACTIONS (18)
  - Altered state of consciousness [Recovered/Resolved]
  - Hypotension [Recovered/Resolved]
  - Oedema peripheral [Recovered/Resolved]
  - Metabolic disorder [Recovered/Resolved]
  - Bradycardia [Recovered/Resolved]
  - Face oedema [Recovered/Resolved]
  - Sepsis [Recovered/Resolved]
  - Cough [Recovered/Resolved]
  - Decreased appetite [Recovered/Resolved]
  - Myxoedema coma [Recovered/Resolved]
  - Nervous system disorder [Recovered/Resolved]
  - Asthenia [Recovered/Resolved]
  - Anhedonia [Recovered/Resolved]
  - Hypothermia [Recovered/Resolved]
  - Renal impairment [Recovered/Resolved]
  - Hypoglycaemia [Recovered/Resolved]
  - Psychomotor retardation [Recovered/Resolved]
  - Hypothyroidism [Recovered/Resolved]
